FAERS Safety Report 9277242 (Version 1)
Quarter: 2013Q2

REPORT INFORMATION
  Report Type: Spontaneous
  Country: AU (occurrence: AU)
  Receive Date: 20130508
  Receipt Date: 20130508
  Transmission Date: 20140414
  Serious: Yes (Disabling)
  Sender: FDA-Public Use
  Company Number: AU-009507513-1305AUS002710

PATIENT
  Age: 40 Year
  Sex: Female

DRUGS (4)
  1. SAPHRIS [Suspect]
     Dosage: 20 MG, BID
     Route: 060
     Dates: start: 20130306, end: 20130310
  2. MIRTAZAPINE GA [Concomitant]
  3. CARBAMAZEPINE [Concomitant]
  4. VENLAFAXINE HYDROCHLORIDE [Concomitant]

REACTIONS (3)
  - Lymphoedema [Recovering/Resolving]
  - Agitation [Recovering/Resolving]
  - Akathisia [Recovering/Resolving]
